FAERS Safety Report 19647513 (Version 1)
Quarter: 2021Q3

REPORT INFORMATION
  Report Type: Spontaneous
  Country: CA (occurrence: CA)
  Receive Date: 20210802
  Receipt Date: 20210802
  Transmission Date: 20211014
  Serious: Yes (Other)
  Sender: FDA-Public Use
  Company Number: CA-ROCHE-2499480

PATIENT
  Age: 38 Year
  Sex: Male

DRUGS (2)
  1. CLONAZEPAM. [Suspect]
     Active Substance: CLONAZEPAM
     Indication: ANXIETY
     Route: 048
  2. CLONAZEPAM. [Suspect]
     Active Substance: CLONAZEPAM
     Indication: PANIC ATTACK
     Route: 048

REACTIONS (6)
  - Suicidal ideation [Unknown]
  - Anxiety [Unknown]
  - Dyspnoea [Unknown]
  - Abnormal dreams [Unknown]
  - Chest discomfort [Unknown]
  - Insomnia [Unknown]
